FAERS Safety Report 8867851 (Version 1)
Quarter: 2012Q4

REPORT INFORMATION
  Report Type: 
  Country: US (occurrence: US)
  Receive Date: 20121026
  Receipt Date: 20121026
  Transmission Date: 20130627
  Serious: No
  Sender: FDA-Public Use
  Company Number: US-AMGEN-USASP2012040787

PATIENT
  Age: 47 Year
  Sex: Female
  Weight: 104.31 kg

DRUGS (16)
  1. ENBREL [Suspect]
     Indication: PRODUCT USED FOR UNKNOWN INDICATION
     Dosage: 50 mg, qwk
     Route: 058
  2. PLAQUENIL                          /00072602/ [Concomitant]
     Dosage: 200 mg, UNK
  3. SERTRALIN                          /01011401/ [Concomitant]
     Dosage: 25 mg, UNK
  4. MORPHINE SULFATE [Concomitant]
     Dosage: 15 mg, UNK
  5. VIVELLE DOT [Concomitant]
     Dosage: 0.025 mg, UNK
  6. LEFLUNOMIDE [Concomitant]
     Dosage: 20 mg, UNK
  7. ATENOLOL [Concomitant]
     Dosage: 25 mg, UNK
  8. HYDROCODONE / IBUPROFEN [Concomitant]
     Dosage: 7.5-200
  9. FOLIC ACID [Concomitant]
     Dosage: 1 mg, UNK
  10. ALBUTEROL                          /00139501/ [Concomitant]
     Dosage: 90 mug, UNK
  11. FLONASE [Concomitant]
     Dosage: SPR O.05%
  12. VITAMIN D /00107901/ [Concomitant]
     Dosage: 50000 unit, UNK
  13. TEMAZEPAM [Concomitant]
     Dosage: 7.5 mg, UNK
  14. TRAZODONE [Concomitant]
     Dosage: 150 mg, UNK
  15. MOBIC [Concomitant]
     Dosage: 7.5 mg, UNK
  16. LEVOXYL [Concomitant]
     Dosage: 175 mug, UNK

REACTIONS (4)
  - Swelling [Unknown]
  - Tooth infection [Unknown]
  - Rash erythematous [Unknown]
  - Rash pruritic [Unknown]
